FAERS Safety Report 6032277-3 (Version None)
Quarter: 2009Q1

REPORT INFORMATION
  Report Type: 
  Country: None (occurrence: None)
  Receive Date: 20090107
  Receipt Date: 20090105
  Transmission Date: 20090719
  Serious: Yes (Other)
  Sender: FDA-Public Use
  Company Number: AE-109-002

PATIENT
  Age: 36 Year
  Sex: Male

DRUGS (3)
  1. LIDODERM [Suspect]
     Indication: PAIN
     Dosage: UP TO 3 PATCHES A DAY
  2. LIDODERM [Suspect]
     Indication: ROAD TRAFFIC ACCIDENT
     Dosage: UP TO 3 PATCHES A DAY
  3. MEDICATIONS FOR PAIN DUE TO NERVE REGENERATION AND NEUROPATHY [Concomitant]

REACTIONS (3)
  - APPLICATION SITE PAIN [None]
  - POSTOPERATIVE WOUND INFECTION [None]
  - SURGERY [None]
